FAERS Safety Report 10195050 (Version 26)
Quarter: 2018Q3

REPORT INFORMATION
  Report Type: Report from Study
  Country: CA (occurrence: CA)
  Receive Date: 20140526
  Receipt Date: 20180717
  Transmission Date: 20181010
  Serious: Yes (Other)
  Sender: FDA-Public Use
  Company Number: PHHY2012CA104562

PATIENT
  Age: 62 Year
  Sex: Male

DRUGS (1)
  1. SANDOSTATIN LAR DEPOT [Suspect]
     Active Substance: OCTREOTIDE ACETATE
     Indication: INTESTINAL MASS
     Dosage: 30 MG, QMO/ EVERY 4 WEEKS
     Route: 030
     Dates: start: 20120614

REACTIONS (19)
  - Fatigue [Unknown]
  - Heart rate decreased [Unknown]
  - Malignant neoplasm progression [Unknown]
  - Hyperhidrosis [Unknown]
  - Influenza like illness [Unknown]
  - Asthenia [Unknown]
  - Tooth loss [Unknown]
  - Headache [Unknown]
  - Nausea [Unknown]
  - Hot flush [Unknown]
  - Blood pressure increased [Unknown]
  - Lung neoplasm malignant [Unknown]
  - Hepatic cancer [Unknown]
  - Energy increased [Unknown]
  - Blood sodium decreased [Unknown]
  - Body temperature decreased [Unknown]
  - Loose tooth [Unknown]
  - Dizziness [Unknown]
  - Nasopharyngitis [Unknown]

NARRATIVE: CASE EVENT DATE: 20150716
